FAERS Safety Report 5119247-4 (Version None)
Quarter: 2006Q4

REPORT INFORMATION
  Report Type: 
  Country: None (occurrence: None)
  Receive Date: 20061002
  Receipt Date: 20061002
  Transmission Date: 20070319
  Serious: No
  Sender: FDA-Public Use
  Company Number: None

PATIENT
  Age: 12 Year
  Sex: Male

DRUGS (2)
  1. ZYPREXA [Suspect]
     Dosage: TABLET
  2. ZYRTEC [Suspect]

REACTIONS (5)
  - ASTHENIA [None]
  - DIZZINESS [None]
  - DRUG DISPENSING ERROR [None]
  - MEDICATION ERROR [None]
  - WRONG DRUG ADMINISTERED [None]
